FAERS Safety Report 5629993-1 (Version None)
Quarter: 2008Q1

REPORT INFORMATION
  Report Type: 
  Country: None (occurrence: None)
  Receive Date: 20080218
  Receipt Date: 20080207
  Transmission Date: 20080703
  Serious: Yes (Other)
  Sender: FDA-Public Use
  Company Number: PHMT2007CA01168

PATIENT
  Age: 81 Year
  Sex: Female

DRUGS (11)
  1. ZELNORM [Suspect]
     Indication: IRRITABLE BOWEL SYNDROME
     Dosage: 6MG BID
     Route: 048
     Dates: start: 20070214, end: 20070219
  2. ZELNORM [Suspect]
     Dosage: 6MG QD
     Route: 048
  3. ZELNORM [Suspect]
     Dates: end: 20070423
  4. ZELNORM [Suspect]
     Dates: start: 20070227
  5. TIAZAC [Concomitant]
     Indication: HYPERTENSION
     Dosage: 240MG ONCE A DAY
  6. ASPIRIN [Concomitant]
     Indication: HYPERTENSION
     Dosage: ONCE A DAY
  7. LORAZEPAM [Concomitant]
     Dosage: 0.5MG AT BEDTIME
  8. SENOKOT [Concomitant]
  9. COLACE [Concomitant]
  10. NEXIUM [Concomitant]
     Dosage: 40MG AM
  11. RANITIDINE [Concomitant]
     Dosage: 300MG

REACTIONS (3)
  - ANGINA PECTORIS [None]
  - ANGIOPLASTY [None]
  - FATIGUE [None]
